FAERS Safety Report 22611577 (Version 1)
Quarter: 2023Q2

REPORT INFORMATION
  Report Type: Report from Study
  Country: US (occurrence: US)
  Receive Date: 20230616
  Receipt Date: 20230616
  Transmission Date: 20230721
  Serious: Yes (Other)
  Sender: FDA-Public Use
  Company Number: US-002147023-NVSC2023US136091

PATIENT
  Sex: Female

DRUGS (1)
  1. GLEEVEC [Suspect]
     Active Substance: IMATINIB MESYLATE
     Indication: Product used for unknown indication
     Dosage: UNK
     Route: 065

REACTIONS (6)
  - Neoplasm malignant [Unknown]
  - Chronic myeloid leukaemia [Unknown]
  - Cellulitis [Unknown]
  - Decreased appetite [Unknown]
  - Pain in extremity [Unknown]
  - Eye pain [Unknown]
